FAERS Safety Report 4270822-9 (Version None)
Quarter: 2004Q1

REPORT INFORMATION
  Report Type: 
  Country: None (occurrence: None)
  Receive Date: 20040113
  Receipt Date: 20040105
  Transmission Date: 20041129
  Serious: Yes (Other)
  Sender: FDA-Public Use
  Company Number: 2003178176GB

PATIENT
  Age: 38 Year
  Sex: Female
  Weight: 67.7 kg

DRUGS (1)
  1. PROSTIN E2 [Suspect]
     Indication: INDUCED LABOUR
     Dosage: 1 MG, SINGLE DOSE, VAGINAL
     Route: 067
     Dates: start: 20030907, end: 20030907

REACTIONS (3)
  - COMPLICATIONS OF MATERNAL EXPOSURE TO THERAPEUTIC DRUGS [None]
  - PREMATURE SEPARATION OF PLACENTA [None]
  - UTERINE HYPERTONUS [None]
